FAERS Safety Report 21302325 (Version 1)
Quarter: 2022Q3

REPORT INFORMATION
  Report Type: Report from Study
  Country: US (occurrence: US)
  Receive Date: 20220907
  Receipt Date: 20220907
  Transmission Date: 20221027
  Serious: Yes (Other)
  Sender: FDA-Public Use
  Company Number: US-ABBVIE-22K-163-4529947-00

PATIENT
  Age: 52 Year
  Sex: Female

DRUGS (1)
  1. SYNTHROID [Suspect]
     Active Substance: LEVOTHYROXINE SODIUM
     Indication: Hypothyroidism
     Route: 048
     Dates: start: 202202, end: 202208

REACTIONS (5)
  - Hypersensitivity [Recovered/Resolved]
  - Erythema [Recovered/Resolved]
  - Feeling hot [Recovered/Resolved]
  - Blood thyroid stimulating hormone increased [Recovered/Resolved]
  - Hypersensitivity [Recovered/Resolved]

NARRATIVE: CASE EVENT DATE: 20220801
